FAERS Safety Report 17002322 (Version 1)
Quarter: 2019Q4

REPORT INFORMATION
  Report Type: Spontaneous
  Country: JP (occurrence: JP)
  Receive Date: 20191106
  Receipt Date: 20191106
  Transmission Date: 20200122
  Serious: Yes (Other)
  Sender: FDA-Public Use
  Company Number: JP-ANIPHARMA-2019-JP-000214

PATIENT
  Sex: Female

DRUGS (4)
  1. ARIMIDEX [Suspect]
     Active Substance: ANASTROZOLE
     Indication: BREAST CANCER FEMALE
     Dosage: 1 MG QD
     Route: 048
  2. LEUPLIN [Concomitant]
     Active Substance: LEUPROLIDE ACETATE
     Dosage: UNK
     Route: 065
  3. FARESTON [Concomitant]
     Active Substance: TOREMIFENE CITRATE
     Dosage: UNK
     Route: 065
  4. NOLVADEX [Suspect]
     Active Substance: TAMOXIFEN CITRATE
     Dosage: UNK
     Route: 048

REACTIONS (6)
  - Endometrial hypertrophy [Unknown]
  - Paget^s disease of nipple [Unknown]
  - Breast cancer recurrent [Unknown]
  - Menorrhagia [Unknown]
  - Weight increased [Unknown]
  - Arthralgia [Unknown]
